FAERS Safety Report 18084042 (Version 8)
Quarter: 2022Q4

REPORT INFORMATION
  Report Type: Report from Study
  Country: US (occurrence: US)
  Receive Date: 20200728
  Receipt Date: 20221011
  Transmission Date: 20230113
  Serious: Yes (Other)
  Sender: FDA-Public Use
  Company Number: NVSC2020US211228

PATIENT
  Sex: Female

DRUGS (1)
  1. COSENTYX [Suspect]
     Active Substance: SECUKINUMAB
     Indication: Product used for unknown indication
     Dosage: UNK
     Route: 065

REACTIONS (5)
  - Myocardial infarction [Unknown]
  - Liver disorder [Unknown]
  - Condition aggravated [Unknown]
  - Back injury [Unknown]
  - Drug ineffective [Unknown]
